FAERS Safety Report 6477065-9 (Version None)
Quarter: 2009Q4

REPORT INFORMATION
  Report Type: 
  Country: None (occurrence: None)
  Receive Date: 20091207
  Receipt Date: 20091124
  Transmission Date: 20100525
  Serious: Yes (Other)
  Sender: FDA-Public Use
  Company Number: US-ELI_LILLY_AND_COMPANY-US200910006703

PATIENT
  Sex: Female
  Weight: 91.156 kg

DRUGS (1)
  1. ZYPREXA [Suspect]

REACTIONS (2)
  - FLUID RETENTION [None]
  - WEIGHT INCREASED [None]
